FAERS Safety Report 8565836 (Version 4)
Quarter: 2013Q4

REPORT INFORMATION
  Report Type: Spontaneous
  Country: JP (occurrence: JP)
  Receive Date: 20120510
  Receipt Date: 20131108
  Transmission Date: 20140711
  Serious: Yes (Life-Threatening, Hospitalization)
  Sender: FDA-Public Use
  Company Number: JP-009507513-2012SP022962

PATIENT
  Age: 37 Year
  Sex: Female
  Weight: 46 kg

DRUGS (8)
  1. PEG-INTRON [Suspect]
     Indication: PRODUCT USED FOR UNKNOWN INDICATION
     Dosage: 80 ?G, QW
     Route: 058
     Dates: start: 20120106, end: 20120419
  2. REBETOL [Suspect]
     Indication: PRODUCT USED FOR UNKNOWN INDICATION
     Dosage: 600 MG, BID
     Route: 048
     Dates: start: 20120106, end: 20120425
  3. PEGINTRON [Suspect]
     Dosage: 80 MICROGRAM, QW
     Route: 058
     Dates: start: 20120106, end: 20120419
  4. LOXOPROFEN [Concomitant]
     Indication: HEADACHE
     Dosage: TAKE AS NEED FOR PAIN
     Route: 048
     Dates: start: 201201, end: 201204
  5. ALLEGRA [Concomitant]
     Indication: PRURITUS
     Dosage: 60 MG, UNK
     Route: 048
     Dates: start: 20120308, end: 20120315
  6. ALLEGRA [Concomitant]
     Indication: PRURITUS
  7. TEPRENONE [Concomitant]
     Indication: HEADACHE
     Dates: start: 201201, end: 201204
  8. TEPRENONE [Concomitant]
     Indication: HEADACHE
     Dosage: TAKE AS NEED FOR PAIN
     Route: 048

REACTIONS (1)
  - Subarachnoid haemorrhage [Recovered/Resolved]
